FAERS Safety Report 14219694 (Version 1)
Quarter: 2017Q4

REPORT INFORMATION
  Report Type: Other
  Country: US (occurrence: US)
  Receive Date: 20171123
  Receipt Date: 20171123
  Transmission Date: 20180321
  Serious: Yes (Other)
  Sender: FDA-Public Use
  Company Number: US-VELOXIS PHARMACEUTICALS-2034972

PATIENT
  Age: 67 Year
  Sex: Male

DRUGS (3)
  1. ENVARSUS XR [Suspect]
     Active Substance: TACROLIMUS
     Indication: PROPHYLAXIS AGAINST GRAFT VERSUS HOST DISEASE
  2. METHOTREXATE SODIUM. [Suspect]
     Active Substance: METHOTREXATE SODIUM
  3. ENVARSUS XR [Suspect]
     Active Substance: TACROLIMUS

REACTIONS (5)
  - Graft versus host disease [Recovered/Resolved]
  - Intentional product use issue [Unknown]
  - Mucosal inflammation [Unknown]
  - Graft versus host disease in liver [Recovered/Resolved]
  - Intentional product misuse [Unknown]
